FAERS Safety Report 9344145 (Version 2)
Quarter: 2013Q2

REPORT INFORMATION
  Report Type: Spontaneous
  Country: US (occurrence: US)
  Receive Date: 20130612
  Receipt Date: 20130628
  Transmission Date: 20140414
  Serious: Yes (Other)
  Sender: FDA-Public Use
  Company Number: US-PFIZER INC-2013173886

PATIENT
  Age: 72 Year
  Sex: Female
  Weight: 83.45 kg

DRUGS (5)
  1. ADVIL [Suspect]
     Indication: MYALGIA
     Dosage: 200 MG, TWO TIMES A DAY
     Route: 048
     Dates: start: 201303, end: 20130604
  2. ADVIL [Suspect]
     Indication: ARTHRALGIA
     Dosage: 325 MG, 2 TO 3 PILLS EVERY OTHER DAY
  3. ADVIL [Suspect]
     Dosage: 325 MG, 3X/DAY
     Dates: start: 201303
  4. ADVIL [Suspect]
     Dosage: UNK, 2 ADVIL BEFORE GOING TO BED
     Dates: start: 20130604
  5. LISINOPRIL [Concomitant]
     Indication: BLOOD PRESSURE ABNORMAL
     Dosage: 10 MG, DAILY

REACTIONS (7)
  - Abdominal pain upper [Recovering/Resolving]
  - Muscle spasms [Recovering/Resolving]
  - Diarrhoea [Recovering/Resolving]
  - Weight decreased [Recovering/Resolving]
  - Flatulence [Recovering/Resolving]
  - Dyspepsia [Recovering/Resolving]
  - Abdominal pain [Recovering/Resolving]
